FAERS Safety Report 8368249-3 (Version None)
Quarter: 2012Q2

REPORT INFORMATION
  Report Type: 
  Country: None (occurrence: None)
  Receive Date: 20120517
  Receipt Date: 20120508
  Transmission Date: 20120825
  Serious: Yes (Hospitalization, Disabling, Other)
  Sender: FDA-Public Use
  Company Number: US-MERCK-1202USA02453

PATIENT
  Age: 61 Year
  Sex: Female
  Weight: 80 kg

DRUGS (2)
  1. FOSAMAX [Suspect]
     Route: 048
     Dates: start: 20010101
  2. FOSAMAX [Suspect]
     Indication: OSTEOPOROSIS
     Route: 048
     Dates: start: 19960101, end: 20001201

REACTIONS (40)
  - SLEEP APNOEA SYNDROME [None]
  - GASTROINTESTINAL HAEMORRHAGE [None]
  - VERTEBRAL FORAMINAL STENOSIS [None]
  - ARTHROPATHY [None]
  - CERVICOBRACHIAL SYNDROME [None]
  - CONNECTIVE TISSUE DISORDER [None]
  - FEMUR FRACTURE [None]
  - ANAEMIA [None]
  - FUNCTIONAL GASTROINTESTINAL DISORDER [None]
  - ABDOMINAL PAIN UPPER [None]
  - CARPAL TUNNEL SYNDROME [None]
  - LIMB ASYMMETRY [None]
  - CHONDROCALCINOSIS PYROPHOSPHATE [None]
  - OSTEOPENIA [None]
  - INTERVERTEBRAL DISC DEGENERATION [None]
  - LOW TURNOVER OSTEOPATHY [None]
  - CATARACT [None]
  - GASTROOESOPHAGEAL REFLUX DISEASE [None]
  - BALANCE DISORDER [None]
  - VERTIGO [None]
  - NECROSIS [None]
  - OSTEOARTHRITIS [None]
  - CARDIAC DISORDER [None]
  - DEVICE FAILURE [None]
  - JOINT SWELLING [None]
  - HYPERPARATHYROIDISM [None]
  - NEUROPATHY PERIPHERAL [None]
  - FRACTURE NONUNION [None]
  - BENIGN BONE NEOPLASM [None]
  - BLADDER DISORDER [None]
  - GLAUCOMA [None]
  - LUMBAR RADICULOPATHY [None]
  - CHEST PAIN [None]
  - GAIT DISTURBANCE [None]
  - GALLBLADDER DISORDER [None]
  - FALL [None]
  - BUNION [None]
  - SPINAL OSTEOARTHRITIS [None]
  - ANAEMIA POSTOPERATIVE [None]
  - PROCEDURAL HYPOTENSION [None]
